FAERS Safety Report 7399153-5 (Version None)
Quarter: 2011Q1

REPORT INFORMATION
  Report Type: 
  Country: None (occurrence: None)
  Receive Date: 20110328
  Receipt Date: 20110314
  Transmission Date: 20110831
  Serious: Yes (Death)
  Sender: FDA-Public Use
  Company Number: BR-001601

PATIENT
  Sex: Male

DRUGS (1)
  1. NAGLAZYME [Suspect]
     Indication: MUCOPOLYSACCHARIDOSIS VI
     Dosage: (DOSE AND FREQUENCY NOT REPORTED INTRAVENOUS DRIP)
     Route: 041

REACTIONS (4)
  - OBSTRUCTIVE AIRWAYS DISORDER [None]
  - TRACHEOSTOMY MALFUNCTION [None]
  - TRACHEOSTOMY TUBE REMOVAL [None]
  - CARDIO-RESPIRATORY ARREST [None]
